FAERS Safety Report 7713454-X (Version None)
Quarter: 2011Q3

REPORT INFORMATION
  Report Type: 
  Country: None (occurrence: None)
  Receive Date: 20110826
  Receipt Date: 20110822
  Transmission Date: 20111222
  Serious: Yes (Death, Life-Threatening, Hospitalization, Other)
  Sender: FDA-Public Use
  Company Number: CH-GENZYME-CLOF-1001616

PATIENT

DRUGS (10)
  1. EVOLTRA [Suspect]
     Indication: ACUTE MYELOID LEUKAEMIA
     Dosage: QD FOR 5 TIMES; 16.6 MG,  INDUCTION CYCLE 2
     Route: 042
     Dates: start: 20110412, end: 20110416
  2. AMSACRINE [Suspect]
     Dosage: QD FOR 3 TIMEPOINTS, 200 MG, INDUCTION CYCLE 2
     Route: 042
     Dates: start: 20110418, end: 20110418
  3. NEXIUM [Concomitant]
     Indication: PROPHYLAXIS
     Dosage: 40 MG, UNK
     Route: 048
     Dates: start: 20110412, end: 20110426
  4. ALLOPURINOL [Concomitant]
     Indication: PROPHYLAXIS
     Dosage: 300 MG, UNK
     Route: 048
     Dates: start: 20110412, end: 20110418
  5. CYTARABINE [Suspect]
     Dosage: 336 MG, QD
     Route: 042
     Dates: start: 20110225, end: 20110303
  6. SOLU-MEDROL [Concomitant]
     Indication: PROPHYLAXIS OF NAUSEA AND VOMITING
     Dosage: 125 MG, UNK
     Route: 042
     Dates: start: 20110412, end: 20110419
  7. AMSACRINE [Suspect]
     Indication: ACUTE MYELOID LEUKAEMIA
     Dosage: QD FOR 3 TIMEPOINTS, 200 MG, INDUCTION CYCLE 2
     Route: 042
     Dates: start: 20110415, end: 20110415
  8. AMSACRINE [Suspect]
     Dosage: QD FOR 3 TIMEPOINTS, 200 MG, INDUCTION CYCLE 2
     Route: 042
     Dates: start: 20110419, end: 20110419
  9. ACTRAPID [Concomitant]
     Indication: DIABETES MELLITUS
     Dosage: UNK, ON DEMAND PRN
     Route: 042
     Dates: start: 20110412, end: 20110426
  10. CYTARABINE [Suspect]
     Indication: ACUTE MYELOID LEUKAEMIA
     Dosage: BID FOR 6 TIMES, 3320 MG, INDUCTION CYCLE 2
     Route: 042
     Dates: start: 20110412, end: 20110417

REACTIONS (6)
  - HYPERGLYCAEMIA [None]
  - PULMONARY HAEMORRHAGE [None]
  - TRAUMATIC LUNG INJURY [None]
  - SYNCOPE [None]
  - BACTERAEMIA [None]
  - NEUTROPENIC COLITIS [None]
